FAERS Safety Report 9157189 (Version 1)
Quarter: 2013Q1

REPORT INFORMATION
  Report Type: Spontaneous
  Country: US (occurrence: US)
  Receive Date: 20130312
  Receipt Date: 20130312
  Transmission Date: 20140127
  Serious: No
  Sender: FDA-Public Use
  Company Number: US-BAYER-2013-026820

PATIENT
  Sex: Male
  Weight: 99.77 kg

DRUGS (5)
  1. BETASERON [Suspect]
     Dosage: 0.25 MG, QOD
     Route: 058
  2. PREDNISONE [Concomitant]
     Dosage: 1 MG, UNK
  3. AMBIEN [Concomitant]
     Dosage: 5 MG, UNK
  4. DEPAKOTE [Concomitant]
     Dosage: 250 MG, UNK
  5. ASPIRIN [Concomitant]
     Dosage: 325 MG, UNK

REACTIONS (1)
  - Insomnia [Unknown]
